FAERS Safety Report 8098859-2 (Version None)
Quarter: 2012Q1

REPORT INFORMATION
  Report Type: 
  Country: None (occurrence: None)
  Receive Date: 20120129
  Receipt Date: 20111006
  Transmission Date: 20120608
  Serious: No
  Sender: FDA-Public Use
  Company Number: US-ABBOTT-11P-163-0857603-00

PATIENT
  Sex: Female

DRUGS (3)
  1. SAVELLA [Concomitant]
     Indication: INTERVERTEBRAL DISC PROTRUSION
  2. ZANAFLEX [Concomitant]
     Indication: MUSCLE SPASMS
  3. HUMIRA [Suspect]
     Indication: PRODUCT USED FOR UNKNOWN INDICATION
     Dosage: MOM GOT THE INJECTION
     Dates: start: 20110923, end: 20110923

REACTIONS (3)
  - WRONG TECHNIQUE IN DRUG USAGE PROCESS [None]
  - WRONG DRUG ADMINISTERED [None]
  - INJURY ASSOCIATED WITH DEVICE [None]
